FAERS Safety Report 6336903-0 (Version None)
Quarter: 2009Q3

REPORT INFORMATION
  Report Type: 
  Country: None (occurrence: None)
  Receive Date: 20090901
  Receipt Date: 20090824
  Transmission Date: 20100115
  Serious: Yes (Death, Hospitalization, Other)
  Sender: FDA-Public Use
  Company Number: PHEH2009US08881

PATIENT
  Sex: Male

DRUGS (5)
  1. GLEEVEC [Suspect]
     Indication: CHRONIC MYELOID LEUKAEMIA
     Dosage: 300 MG DAILY
     Route: 048
     Dates: start: 20030101
  2. ALLOPURINOL [Concomitant]
     Indication: GOUT
     Dosage: 200 MG, DALIY
     Route: 048
     Dates: start: 20071221
  3. COZAAR [Concomitant]
     Indication: HYPERTENSION
     Dosage: 50 MG, DAILY
  4. AVELOX [Concomitant]
     Indication: BURSITIS INFECTIVE
     Dosage: 4 MG, DAILY X 2 WKS.
     Dates: start: 20071221
  5. OMEPRAZOLE [Concomitant]
     Dosage: 20 MG, DAILY
     Route: 048

REACTIONS (19)
  - ASTHENIA [None]
  - BURSITIS INFECTIVE [None]
  - COUGH [None]
  - DYSPNOEA [None]
  - GOUT [None]
  - HYPOXIC ENCEPHALOPATHY [None]
  - INTERSTITIAL LUNG DISEASE [None]
  - MYDRIASIS [None]
  - OEDEMA PERIPHERAL [None]
  - OSTEOMYELITIS ACUTE [None]
  - PNEUMONIA [None]
  - PULMONARY CONGESTION [None]
  - PULMONARY FIBROSIS [None]
  - PUPIL FIXED [None]
  - RALES [None]
  - RENAL FAILURE CHRONIC [None]
  - RESUSCITATION [None]
  - UNRESPONSIVE TO STIMULI [None]
  - VITAL CAPACITY DECREASED [None]
